FAERS Safety Report 25428647 (Version 1)
Quarter: 2025Q2

REPORT INFORMATION
  Report Type: Spontaneous
  Country: IT (occurrence: IT)
  Receive Date: 20250612
  Receipt Date: 20250612
  Transmission Date: 20250716
  Serious: Yes (Hospitalization)
  Sender: DUCHESNAY
  Company Number: IT-EXELTIS PHARMACEUTICAL HOLDING, S.L.-2506IT04423

PATIENT

DRUGS (1)
  1. BONJESTA [Suspect]
     Active Substance: DOXYLAMINE SUCCINATE\PYRIDOXINE HYDROCHLORIDE
     Indication: Morning sickness

REACTIONS (1)
  - Hypertransaminasaemia [Recovered/Resolved]
